FAERS Safety Report 6446923-3 (Version None)
Quarter: 2009Q4

REPORT INFORMATION
  Report Type: 
  Country: None (occurrence: None)
  Receive Date: 20091119
  Receipt Date: 20091116
  Transmission Date: 20100525
  Serious: Yes (Life-Threatening, Hospitalization)
  Sender: FDA-Public Use
  Company Number: US-MERCK-0911USA00769

PATIENT
  Age: 69 Year
  Sex: Female
  Weight: 65 kg

DRUGS (1)
  1. SINGULAIR [Suspect]
     Indication: DYSPHONIA
     Route: 048
     Dates: start: 20090423, end: 20090425

REACTIONS (9)
  - AGITATION [None]
  - ATRIAL FIBRILLATION [None]
  - DEPRESSION [None]
  - DRUG HYPERSENSITIVITY [None]
  - DYSPNOEA [None]
  - FATIGUE [None]
  - HEADACHE [None]
  - INSOMNIA [None]
  - SLUGGISHNESS [None]
